FAERS Safety Report 6946754 (Version 1)
Quarter: 2020Q3

REPORT INFORMATION
  Report Type: Report from Study
  Country: US (occurrence: US)
  Receive Date: 20090320
  Receipt Date: 20090320
  Transmission Date: 20201105
  Serious: Yes (Other)
  Sender: FDA-Public Use
  Company Number: US-ROCHE-621164

PATIENT
  Age: 72 Year
  Sex: Female

DRUGS (5)
  1. CRESTOR [Concomitant]
     Active Substance: ROSUVASTATIN CALCIUM
  2. TAMOXIFEN CITRATE. [Concomitant]
     Active Substance: TAMOXIFEN CITRATE
  3. UNSPECIFIED INGREDIENT [Concomitant]
     Active Substance: UNSPECIFIED INGREDIENT
  4. IBANDRONIC ACID. [Suspect]
     Active Substance: IBANDRONIC ACID
     Indication: OSTEOPENIA
     Route: 048
     Dates: start: 2004
  5. DIOVAN [Concomitant]
     Active Substance: VALSARTAN

REACTIONS (3)
  - Metastases to lung [Unknown]
  - Breast cyst [Unknown]
  - Renal impairment [Unknown]

NARRATIVE: CASE EVENT DATE: 20081201
